FAERS Safety Report 8337645-2 (Version None)
Quarter: 2012Q2

REPORT INFORMATION
  Report Type: 
  Country: None (occurrence: None)
  Receive Date: 20120504
  Receipt Date: 20120504
  Transmission Date: 20120825
  Serious: No
  Sender: FDA-Public Use
  Company Number: None

PATIENT
  Age: 9 Year
  Sex: Female
  Weight: 30.844 kg

DRUGS (1)
  1. GUAIFENESIN [Suspect]
     Indication: RESPIRATORY TRACT CONGESTION
     Dosage: |DOSAGETEXT: 100.0 MG||STRENGTH: 100 MG||FREQ: 1-2 PACKS Q 4 HOUR||ROUTE: ORAL|
     Route: 048
     Dates: start: 20120502, end: 20120502

REACTIONS (6)
  - PRODUCT CONTAMINATION [None]
  - DIZZINESS [None]
  - NAUSEA [None]
  - TACHYCARDIA [None]
  - PRODUCT QUALITY ISSUE [None]
  - DEFAECATION URGENCY [None]
